FAERS Safety Report 8869878 (Version 2)
Quarter: 2012Q4

REPORT INFORMATION
  Report Type: 
  Country: US (occurrence: None)
  Receive Date: 20121024
  Receipt Date: 20121121
  Transmission Date: 20130627
  Serious: Yes (Hospitalization)
  Sender: FDA-Public Use
  Company Number: MPS1-1000800

PATIENT
  Age: 13 Year
  Sex: Female
  Weight: 65.1 kg

DRUGS (6)
  1. ALDURAZYME (LARONIDASE) CONCENTRATE FOR SOLUTION FOR INFUSION [Suspect]
     Indication: MUCOPOLYSACCHARIDOSIS I
     Route: 042
     Dates: start: 20120622
  2. ENALAPRIL [Concomitant]
  3. PREVACID (LANSOPRAZOLE) [Concomitant]
  4. SYNTHROID (LEVOTHYROXINE SODIUM) [Concomitant]
  5. PERIACTIN (CYPROHEPTADINE HYDROCHLORIDE) [Concomitant]
  6. HUMAN GROWTH HORMONE, RECOMBINANT (SOMATROPIN) [Concomitant]

REACTIONS (6)
  - Blood magnesium decreased [None]
  - Blood potassium decreased [None]
  - Loss of consciousness [None]
  - Syncope [None]
  - Vomiting [None]
  - Heart rate increased [None]
